FAERS Safety Report 21136380 (Version 1)
Quarter: 2022Q3

REPORT INFORMATION
  Report Type: Report from Study
  Country: TW (occurrence: TW)
  Receive Date: 20220727
  Receipt Date: 20220727
  Transmission Date: 20221026
  Serious: Yes (Other)
  Sender: FDA-Public Use
  Company Number: TW-PFIZER INC-202200994109

PATIENT
  Age: 64 Year
  Sex: Male

DRUGS (4)
  1. IRINOTECAN HYDROCHLORIDE [Suspect]
     Active Substance: IRINOTECAN HYDROCHLORIDE
     Indication: Colorectal cancer metastatic
     Dosage: 120 MG/M2, CYCLIC
  2. LEUCOVORIN CALCIUM [Suspect]
     Active Substance: LEUCOVORIN CALCIUM
     Indication: Colorectal cancer metastatic
     Dosage: UNK, CYCLIC
  3. BEVACIZUMAB [Suspect]
     Active Substance: BEVACIZUMAB
     Indication: Colorectal cancer metastatic
     Dosage: UNK UNK, CYCLIC
  4. FLUOROURACIL [Suspect]
     Active Substance: FLUOROURACIL
     Indication: Colorectal cancer metastatic
     Dosage: UNK, CYCLIC

REACTIONS (7)
  - Neutropenia [Unknown]
  - Renal impairment [Unknown]
  - Anaemia [Unknown]
  - Fatigue [Unknown]
  - Nausea [Unknown]
  - Hepatic function abnormal [Unknown]
  - Alopecia [Unknown]
